FAERS Safety Report 22121452 (Version 1)
Quarter: 2023Q1

REPORT INFORMATION
  Report Type: Report from Study
  Country: US (occurrence: US)
  Receive Date: 20230321
  Receipt Date: 20230321
  Transmission Date: 20230417
  Serious: No
  Sender: FDA-Public Use
  Company Number: US-002147023-NVSC2023US059970

PATIENT
  Sex: Female
  Weight: 97.52 kg

DRUGS (1)
  1. TACROLIMUS [Suspect]
     Active Substance: TACROLIMUS
     Indication: Psoriasis
     Dosage: 0.1 % (AS NEEDED)
     Route: 061

REACTIONS (2)
  - Psoriasis [Unknown]
  - Product use in unapproved indication [Unknown]
